FAERS Safety Report 8455357-1 (Version None)
Quarter: 2012Q2

REPORT INFORMATION
  Report Type: 
  Country: None (occurrence: None)
  Receive Date: 20120621
  Receipt Date: 20120611
  Transmission Date: 20120825
  Serious: Yes (Other)
  Sender: FDA-Public Use
  Company Number: US-ELI_LILLY_AND_COMPANY-US201206004558

PATIENT
  Age: 83 Year
  Sex: Female

DRUGS (1)
  1. FORTEO [Suspect]
     Indication: OSTEOPOROSIS
     Dosage: UNK, QD

REACTIONS (6)
  - RIB FRACTURE [None]
  - FALL [None]
  - UPPER LIMB FRACTURE [None]
  - LIMB INJURY [None]
  - FOOT FRACTURE [None]
  - HAND FRACTURE [None]
